FAERS Safety Report 8735814 (Version 2)
Quarter: 2012Q4

REPORT INFORMATION
  Report Type: 
  Country: CA (occurrence: CA)
  Receive Date: 20120822
  Receipt Date: 20121024
  Transmission Date: 20130627
  Serious: Yes (Hospitalization, Other)
  Sender: FDA-Public Use
  Company Number: CA-JNJFOC-20120610116

PATIENT
  Sex: Female
  Weight: 59 kg

DRUGS (12)
  1. REMICADE [Suspect]
     Indication: CROHN^S DISEASE
     Route: 042
     Dates: start: 20111013
  2. REMICADE [Suspect]
     Indication: CROHN^S DISEASE
     Route: 042
     Dates: start: 20120814
  3. REMICADE [Suspect]
     Indication: CROHN^S DISEASE
     Route: 042
     Dates: start: 201206
  4. GRAVOL [Concomitant]
     Dosage: prn
     Route: 065
  5. PANTOLOC [Concomitant]
     Route: 065
  6. VITAMIN C [Concomitant]
     Route: 065
  7. VITAMIN D [Concomitant]
     Route: 065
  8. LOMOTIL [Concomitant]
     Dosage: prn
     Route: 065
  9. HYDROMORPH [Concomitant]
     Dosage: prn
     Route: 065
  10. PREDNISONE [Concomitant]
     Route: 065
  11. IRON [Concomitant]
     Route: 065
  12. CALCIUM [Concomitant]
     Route: 065

REACTIONS (3)
  - Vaginal fistula [Not Recovered/Not Resolved]
  - Crohn^s disease [Recovering/Resolving]
  - Anal fistula [Not Recovered/Not Resolved]
